FAERS Safety Report 6424498-2 (Version None)
Quarter: 2009Q4

REPORT INFORMATION
  Report Type: 
  Country: None (occurrence: None)
  Receive Date: 20091103
  Receipt Date: 20091029
  Transmission Date: 20100525
  Serious: Yes (Other)
  Sender: FDA-Public Use
  Company Number: ES-WYE-G04745109

PATIENT
  Age: 75 Year
  Sex: Male
  Weight: 65 kg

DRUGS (3)
  1. TAZOCEL [Suspect]
     Indication: STAPHYLOCOCCAL INFECTION
     Dosage: UNKNOWN
     Route: 042
     Dates: start: 20081024, end: 20081024
  2. DIFLUCAN [Concomitant]
     Dosage: UNKNOWN
     Route: 042
     Dates: start: 20081017, end: 20081106
  3. DALACIN FOSFATO [Concomitant]
     Dosage: UNKNOWN
     Route: 042
     Dates: start: 20081020, end: 20081102

REACTIONS (2)
  - FACE OEDEMA [None]
  - RASH [None]
